FAERS Safety Report 24254760 (Version 1)
Quarter: 2024Q3

REPORT INFORMATION
  Report Type: Spontaneous
  Country: IT (occurrence: IT)
  Receive Date: 20240827
  Receipt Date: 20240827
  Transmission Date: 20241017
  Serious: Yes (Other)
  Sender: TEVA
  Company Number: None

PATIENT
  Age: 67 Year
  Sex: Female
  Weight: 50 kg

DRUGS (1)
  1. LETROZOLE [Suspect]
     Active Substance: LETROZOLE
     Indication: Breast cancer
     Dosage: LETROZOLE TEVA, 2.5 MG/DAY
     Route: 048

REACTIONS (1)
  - Abnormal uterine bleeding [Recovering/Resolving]

NARRATIVE: CASE EVENT DATE: 20240806
